FAERS Safety Report 19417169 (Version 1)
Quarter: 2021Q2

REPORT INFORMATION
  Report Type: Spontaneous
  Country: US (occurrence: US)
  Receive Date: 20210614
  Receipt Date: 20210614
  Transmission Date: 20210717
  Serious: Yes (Disabling, Other)
  Sender: FDA-Public Use
  Company Number: None

PATIENT
  Age: 30 Year
  Sex: Female
  Weight: 72.58 kg

DRUGS (6)
  1. TOPIRATE [Concomitant]
  2. ATIVAN [Concomitant]
     Active Substance: LORAZEPAM
  3. TRILAFON [Concomitant]
     Active Substance: PERPHENAZINE
  4. GABAPENTIN 100 MG (GENERIC NEURONTIN) [Suspect]
     Active Substance: GABAPENTIN
     Indication: SCHIZOPHRENIA
     Dosage: ?          QUANTITY:200 CAPSULES?
     Route: 048
     Dates: start: 20180120, end: 20200423
  5. PROVIGIL [Concomitant]
     Active Substance: MODAFINIL
  6. ATARAX [Concomitant]
     Active Substance: HYDROXYZINE HYDROCHLORIDE

REACTIONS (1)
  - Product substitution issue [None]

NARRATIVE: CASE EVENT DATE: 20200317
